FAERS Safety Report 10119231 (Version 2)
Quarter: 2014Q2

REPORT INFORMATION
  Report Type: Spontaneous
  Country: PK (occurrence: PK)
  Receive Date: 20140425
  Receipt Date: 20140501
  Transmission Date: 20141212
  Serious: Yes (Death)
  Sender: FDA-Public Use
  Company Number: PK-PFIZER INC-2014112174

PATIENT
  Sex: 0

DRUGS (2)
  1. SUTENT [Suspect]
     Indication: GASTROINTESTINAL STROMAL CANCER
     Dosage: 50 MG (12.5 MG X 4 CAPSULES), 1X/DAY
     Route: 048
     Dates: start: 201212
  2. AMARYL [Concomitant]
     Dosage: 4 MG, 1X/DAY

REACTIONS (1)
  - Cardiopulmonary failure [Fatal]
